FAERS Safety Report 15933292 (Version 2)
Quarter: 2019Q1

REPORT INFORMATION
  Report Type: Spontaneous
  Country: DE (occurrence: DE)
  Receive Date: 20190207
  Receipt Date: 20190212
  Transmission Date: 20190417
  Serious: Yes (Other)
  Sender: FDA-Public Use
  Company Number: DE-BIOCODEX SA-201801346

PATIENT
  Sex: Female
  Weight: 25 kg

DRUGS (5)
  1. ERGENYL [Suspect]
     Active Substance: VALPROIC ACID
     Dosage: 720 MG, QD
     Route: 048
     Dates: start: 201803, end: 201803
  2. DIACOMIT [Suspect]
     Active Substance: STIRIPENTOL
     Dosage: 875 MG, QD
  3. ERGENYL [Suspect]
     Active Substance: VALPROIC ACID
     Indication: EPILEPSY
     Dosage: UNK
     Route: 048
     Dates: end: 201803
  4. DIBRO-BE MONO [Concomitant]
     Indication: EPILEPSY
     Dosage: 1700 MG, QD
     Route: 048
     Dates: start: 2014
  5. DIACOMIT [Suspect]
     Active Substance: STIRIPENTOL
     Indication: SEVERE MYOCLONIC EPILEPSY OF INFANCY
     Dosage: 250 MG, QD
     Dates: start: 20180817, end: 20170828

REACTIONS (7)
  - Confusional state [Recovered/Resolved]
  - Hallucination [Recovered/Resolved]
  - Tremor [Unknown]
  - Sleep disorder [Recovered/Resolved]
  - Mental disorder [Recovered/Resolved]
  - Personality change [Recovered/Resolved]
  - Somnolence [Recovered/Resolved]
